FAERS Safety Report 7746662-2 (Version None)
Quarter: 2011Q3

REPORT INFORMATION
  Report Type: 
  Country: None (occurrence: None)
  Receive Date: 20110913
  Receipt Date: 20110907
  Transmission Date: 20111222
  Serious: Yes (Hospitalization)
  Sender: FDA-Public Use
  Company Number: US-ABBOTT-11P-163-0727658-00

PATIENT
  Sex: Female
  Weight: 55.842 kg

DRUGS (17)
  1. BIRTH CONTROL [Concomitant]
     Indication: CONTRACEPTION
     Dosage: 21 DAY CYCLE
  2. PREDNISONE [Concomitant]
     Indication: PRODUCT USED FOR UNKNOWN INDICATION
     Dosage: 50MG, 5 10MG TABLET DAILY
  3. ZANTAC [Concomitant]
     Indication: DYSPEPSIA
  4. ANTIDIARRHEAL [Concomitant]
     Indication: DIARRHOEA
     Dosage: OTC
  5. PRILOSEC [Concomitant]
     Indication: DYSPEPSIA
  6. HUMIRA [Suspect]
     Dates: start: 20110601, end: 20110701
  7. POTASSIUM [Concomitant]
     Indication: BLOOD POTASSIUM DECREASED
  8. LORACET 10/650 [Concomitant]
     Indication: PRODUCT USED FOR UNKNOWN INDICATION
     Dosage: 1/2 A TAB, PRN
  9. MELATONIN [Concomitant]
     Indication: INSOMNIA
  10. CELEXA [Concomitant]
     Indication: DEPRESSION
  11. OMEPRAZOLE [Concomitant]
     Indication: GASTROOESOPHAGEAL REFLUX DISEASE
  12. ATIVAN [Concomitant]
     Indication: PRODUCT USED FOR UNKNOWN INDICATION
     Dosage: 0.5MG 1 TAB TID WITH PREDNISONE
  13. KLONOPIN [Concomitant]
     Indication: PRODUCT USED FOR UNKNOWN INDICATION
     Dosage: 1 MG
  14. PREDNISONE [Concomitant]
     Dosage: 40MG FOR 5 DAYS THEN D/C
  15. HUMIRA [Suspect]
     Indication: CROHN'S DISEASE
     Dosage: LOADING DOSE ONLY
     Dates: start: 20110517, end: 20110517
  16. PHENERGAN HCL [Concomitant]
     Indication: PRODUCT USED FOR UNKNOWN INDICATION
  17. CHLORACON M10 [Concomitant]
     Indication: PRODUCT USED FOR UNKNOWN INDICATION

REACTIONS (15)
  - OVARIAN CYST [None]
  - TONSILLITIS [None]
  - FATIGUE [None]
  - COUGH [None]
  - ORAL HERPES [None]
  - OEDEMA PERIPHERAL [None]
  - SPUTUM DISCOLOURED [None]
  - SINUSITIS [None]
  - RHINORRHOEA [None]
  - NASOPHARYNGITIS [None]
  - PAIN [None]
  - BRONCHITIS [None]
  - PHARYNGITIS STREPTOCOCCAL [None]
  - OROPHARYNGEAL PAIN [None]
  - SWELLING FACE [None]
